FAERS Safety Report 21602631 (Version 1)
Quarter: 2022Q4

REPORT INFORMATION
  Report Type: Spontaneous
  Country: US (occurrence: US)
  Receive Date: 20221116
  Receipt Date: 20221116
  Transmission Date: 20230112
  Serious: Yes (Hospitalization)
  Sender: FDA-Public Use
  Company Number: US-BIOVITRUM-2022US13181

PATIENT
  Sex: Male

DRUGS (2)
  1. SYNAGIS [Suspect]
     Active Substance: PALIVIZUMAB
     Indication: Patent ductus arteriosus
     Dosage: (100MG/ML)
     Dates: start: 20221012
  2. SYNAGIS [Suspect]
     Active Substance: PALIVIZUMAB
     Indication: Lung disorder

REACTIONS (2)
  - Rhinovirus infection [Unknown]
  - Tracheal disorder [Unknown]
